FAERS Safety Report 5808060-8 (Version None)
Quarter: 2008Q3

REPORT INFORMATION
  Report Type: 
  Country: None (occurrence: None)
  Receive Date: 20080711
  Receipt Date: 20080627
  Transmission Date: 20090109
  Serious: Yes (Other)
  Sender: FDA-Public Use
  Company Number: GB-GENENTECH-263895

PATIENT
  Sex: Female

DRUGS (2)
  1. BEVACIZUMAB [Suspect]
     Indication: COLON CANCER
     Dosage: 400 MG, Q3W
     Route: 042
     Dates: start: 20080207
  2. CAPECITABINE [Suspect]
     Indication: COLON CANCER
     Dosage: 1500 MG, BID
     Route: 048

REACTIONS (1)
  - HEPATIC INFARCTION [None]
